FAERS Safety Report 13959235 (Version 1)
Quarter: 2017Q3

REPORT INFORMATION
  Report Type: Spontaneous
  Country: TW (occurrence: TW)
  Receive Date: 20170912
  Receipt Date: 20170912
  Transmission Date: 20171128
  Serious: Yes (Life-Threatening, Hospitalization, Other)
  Sender: FDA-Public Use
  Company Number: TW-ACCORD-058177

PATIENT
  Age: 35 Year
  Sex: Male
  Weight: 72 kg

DRUGS (2)
  1. PREDNISOLONE. [Suspect]
     Active Substance: PREDNISOLONE
     Indication: GLOMERULONEPHRITIS MINIMAL LESION
     Route: 048
  2. FUROSEMIDE. [Suspect]
     Active Substance: FUROSEMIDE
     Indication: GLOMERULONEPHRITIS MINIMAL LESION

REACTIONS (2)
  - Pulmonary embolism [Recovered/Resolved]
  - Syncope [Unknown]
